FAERS Safety Report 24839792 (Version 1)
Quarter: 2025Q1

REPORT INFORMATION
  Report Type: Spontaneous
  Country: SG (occurrence: SG)
  Receive Date: 20250114
  Receipt Date: 20250114
  Transmission Date: 20250409
  Serious: Yes (Other)
  Sender: ROCHE
  Company Number: SG-ROCHE-10000175082

PATIENT
  Age: 62 Year
  Sex: Male

DRUGS (1)
  1. RITUXIMAB [Suspect]
     Active Substance: RITUXIMAB
     Indication: Product used for unknown indication
     Route: 065

REACTIONS (3)
  - Erythema [Unknown]
  - Flushing [Unknown]
  - Oedema [Unknown]

NARRATIVE: CASE EVENT DATE: 20241004
